FAERS Safety Report 7110232-X (Version None)
Quarter: 2010Q4

REPORT INFORMATION
  Report Type: 
  Country: None (occurrence: None)
  Receive Date: 20101117
  Receipt Date: 20101117
  Transmission Date: 20110411
  Serious: Yes (Other)
  Sender: FDA-Public Use
  Company Number: None

PATIENT
  Age: 79 Year
  Sex: Male
  Weight: 113.3993 kg

DRUGS (1)
  1. PRESERVISION 400 IU OF E BAUSCH + LOMB [Suspect]
     Indication: MACULAR DEGENERATION
     Dosage: VITAMINS + 200 IU-E 2X/DAY ORAL
     Route: 048

REACTIONS (1)
  - HAEMORRHAGE [None]
